FAERS Safety Report 10203134 (Version 1)
Quarter: 2014Q2

REPORT INFORMATION
  Report Type: Spontaneous
  Country: US (occurrence: US)
  Receive Date: 20140529
  Receipt Date: 20140529
  Transmission Date: 20141212
  Serious: No
  Sender: FDA-Public Use
  Company Number: US-009507513-1405USA012634

PATIENT
  Age: 23 Year
  Sex: Female
  Weight: 72.56 kg

DRUGS (1)
  1. NEXPLANON [Suspect]
     Indication: CONTRACEPTION
     Dosage: DOSE/FREQUENCY: 3 YEARS
     Route: 059
     Dates: start: 20130125

REACTIONS (4)
  - Menstrual disorder [Unknown]
  - Polymenorrhoea [Unknown]
  - Malaise [Unknown]
  - Pain [Unknown]
